FAERS Safety Report 24874713 (Version 2)
Quarter: 2025Q1

REPORT INFORMATION
  Report Type: Spontaneous
  Country: US (occurrence: US)
  Receive Date: 20250122
  Receipt Date: 20250225
  Transmission Date: 20250408
  Serious: Yes (Other)
  Sender: PFIZER
  Company Number: US-PFIZER INC-202500011906

PATIENT
  Age: 74 Year
  Sex: Female
  Weight: 90.72 kg

DRUGS (6)
  1. COLESTID [Suspect]
     Active Substance: COLESTIPOL HYDROCHLORIDE
     Indication: Bile acids
     Dosage: 2 TABLETS, TWICE A DAY WITH A TOTAL OF 4 GRAMS A DAY
     Route: 048
     Dates: start: 20250113, end: 20250201
  2. CARVEDILOL [Concomitant]
     Active Substance: CARVEDILOL
     Indication: Hypertension
     Dosage: 12.5 MILLIGRAMS, TWICE A DAY
  3. CHLORTHALIDONE [Concomitant]
     Active Substance: CHLORTHALIDONE
     Indication: Hypertension
     Dosage: 25 MILLIGRAMS, ONCE A DAY
  4. AMLODIPINE [Concomitant]
     Active Substance: AMLODIPINE BESYLATE
     Indication: Hypertension
     Dosage: 10 MILLIGRAMS, ONCE A DAY
  5. LOSARTAN [Concomitant]
     Active Substance: LOSARTAN
     Indication: Hypertension
     Dosage: 50 MILLIGRAMS, ONCE A DAY
  6. CHOLESTYRAMINE [Concomitant]
     Active Substance: CHOLESTYRAMINE
     Indication: Bile acid malabsorption
     Dosage: 4 G, 1X/DAY

REACTIONS (5)
  - Product size issue [Unknown]
  - Foreign body in throat [Unknown]
  - Dysphagia [Unknown]
  - Dyspnoea [Unknown]
  - Choking [Unknown]

NARRATIVE: CASE EVENT DATE: 20250113
